FAERS Safety Report 16483483 (Version 5)
Quarter: 2019Q3

REPORT INFORMATION
  Report Type: Spontaneous
  Country: US (occurrence: US)
  Receive Date: 20190627
  Receipt Date: 20190905
  Transmission Date: 20191004
  Serious: No
  Sender: FDA-Public Use
  Company Number: US-PFIZER INC-2019272615

PATIENT
  Age: 47 Year
  Sex: Female
  Weight: 84 kg

DRUGS (6)
  1. PREDNISONE. [Concomitant]
     Active Substance: PREDNISONE
     Dosage: UNK, 1X/DAY (DAILY AT NIGHT)
  2. OMEGA 3 [Concomitant]
     Active Substance: OMEGA-3 FATTY ACIDS
     Dosage: UNK
  3. ACIDOPHILUS [Concomitant]
     Active Substance: LACTOBACILLUS ACIDOPHILUS
     Dosage: UNK
  4. XELJANZ XR [Suspect]
     Active Substance: TOFACITINIB CITRATE
     Indication: RHEUMATOID ARTHRITIS
     Dosage: 11 MG, DAILY
     Route: 048
  5. XELJANZ XR [Suspect]
     Active Substance: TOFACITINIB CITRATE
     Dosage: 120 MG, 1X/DAY
     Dates: start: 2008
  6. PREDNISONE. [Concomitant]
     Active Substance: PREDNISONE
     Dosage: TWO PREDNISONE

REACTIONS (3)
  - Incorrect dose administered [Unknown]
  - Product dose omission [Recovered/Resolved]
  - Pain [Recovered/Resolved]
